FAERS Safety Report 21340965 (Version 3)
Quarter: 2022Q4

REPORT INFORMATION
  Report Type: Report from Study
  Country: US (occurrence: US)
  Receive Date: 20220916
  Receipt Date: 20221209
  Transmission Date: 20230113
  Serious: Yes (Hospitalization, Other)
  Sender: FDA-Public Use
  Company Number: US-NOVARTISPH-NVSC2022US206115

PATIENT
  Sex: Female

DRUGS (1)
  1. ENTRESTO [Suspect]
     Active Substance: SACUBITRIL\VALSARTAN
     Indication: Product used for unknown indication
     Dosage: UNK
     Route: 065

REACTIONS (9)
  - Atrial fibrillation [Recovering/Resolving]
  - Weight decreased [Unknown]
  - Micturition urgency [Not Recovered/Not Resolved]
  - Insomnia [Unknown]
  - Thirst [Unknown]
  - Vision blurred [Not Recovered/Not Resolved]
  - Balance disorder [Unknown]
  - Arthropathy [Unknown]
  - Blood potassium increased [Not Recovered/Not Resolved]
